FAERS Safety Report 10728541 (Version 9)
Quarter: 2015Q3

REPORT INFORMATION
  Report Type: Report from Study
  Country: US (occurrence: US)
  Receive Date: 20150122
  Receipt Date: 20150727
  Transmission Date: 20151125
  Serious: Yes (Hospitalization, Other)
  Sender: FDA-Public Use
  Company Number: US-ALEXION PHARMACEUTICALS INC.-A201500131

PATIENT

DRUGS (3)
  1. HEPARIN [Concomitant]
     Active Substance: HEPARIN SODIUM
     Indication: PRODUCT USED FOR UNKNOWN INDICATION
     Dosage: UNK
     Route: 065
  2. SOLIRIS [Suspect]
     Active Substance: ECULIZUMAB
     Dosage: UNK
     Route: 042
  3. SOLIRIS [Suspect]
     Active Substance: ECULIZUMAB
     Indication: HAEMOLYTIC URAEMIC SYNDROME
     Dosage: UNK
     Route: 042

REACTIONS (22)
  - Pancreatic pseudocyst [Recovered/Resolved]
  - Food intolerance [Not Recovered/Not Resolved]
  - Bacteraemia [Unknown]
  - Blood creatinine abnormal [Unknown]
  - Swelling [Recovering/Resolving]
  - Vomiting [Unknown]
  - Deep vein thrombosis [Unknown]
  - Enterococcal bacteraemia [Not Recovered/Not Resolved]
  - Haemoglobin decreased [Unknown]
  - Infection [Recovering/Resolving]
  - Asthenia [Not Recovered/Not Resolved]
  - Gastric disorder [Unknown]
  - Haemorrhage [Unknown]
  - Nodule [Unknown]
  - Pyrexia [Unknown]
  - Renal impairment [Recovering/Resolving]
  - Haematocrit decreased [Unknown]
  - Anticoagulation drug level below therapeutic [Unknown]
  - Hypoaesthesia [Not Recovered/Not Resolved]
  - Pancreatitis [Recovering/Resolving]
  - Malaise [Unknown]
  - Pain [Recovering/Resolving]

NARRATIVE: CASE EVENT DATE: 20150124
